FAERS Safety Report 5037481-9 (Version None)
Quarter: 2006Q2

REPORT INFORMATION
  Report Type: 
  Country: None (occurrence: None)
  Receive Date: 20060609
  Receipt Date: 20050725
  Transmission Date: 20061013
  Serious: Yes (Other)
  Sender: FDA-Public Use
  Company Number: 2005093478

PATIENT
  Age: 62 Year
  Sex: Female
  Weight: 61.2356 kg

DRUGS (7)
  1. ALDACTONE [Suspect]
     Indication: BLOOD PRESSURE FLUCTUATION
     Dosage: 25 MG (50 MG, DAILY, INTERVAL: EVERY DAY), ORAL
     Route: 048
     Dates: start: 20050504, end: 20050627
  2. FLAXSEED OIL (LINSEED OIL) [Suspect]
     Indication: HYPERCHOLESTEROLAEMIA
     Dates: start: 20050101
  3. FLAXSEED OIL (LINSEED OIL) [Suspect]
     Indication: MEDICAL DIET
     Dates: start: 20050101
  4. ANTIHYPERTENSIVES (ANTIHYPERTENSIVES) [Concomitant]
  5. TOPROL-XL [Concomitant]
  6. XANAX [Concomitant]
  7. DARVON [Concomitant]

REACTIONS (3)
  - BLOOD CHOLESTEROL INCREASED [None]
  - BLOOD POTASSIUM INCREASED [None]
  - DRUG INTERACTION [None]
